FAERS Safety Report 23801494 (Version 2)
Quarter: 2024Q3

REPORT INFORMATION
  Report Type: Spontaneous
  Country: US (occurrence: US)
  Receive Date: 20240430
  Receipt Date: 20240911
  Transmission Date: 20241016
  Serious: No
  Sender: SANOFI AVENTIS
  Company Number: US-SA-SAC20240426000982

PATIENT
  Age: 31 Year
  Sex: Female
  Weight: 53.18 kg

DRUGS (1)
  1. REZUROCK [Suspect]
     Active Substance: BELUMOSUDIL
     Indication: Graft versus host disease
     Dosage: 200 MG, QD
     Route: 048
     Dates: start: 20211119

REACTIONS (2)
  - Urinary tract infection [Unknown]
  - Dysphagia [Not Recovered/Not Resolved]
